FAERS Safety Report 10868874 (Version 3)
Quarter: 2015Q1

REPORT INFORMATION
  Report Type: Report from Study
  Country: CH (occurrence: CH)
  Receive Date: 20150225
  Receipt Date: 20150310
  Transmission Date: 20150721
  Serious: Yes (Other)
  Sender: FDA-Public Use
  Company Number: PHHY2014CH075792

PATIENT
  Age: 31 Year
  Sex: Female
  Weight: 52 kg

DRUGS (2)
  1. GILENYA [Suspect]
     Active Substance: FINGOLIMOD HYDROCHLORIDE
     Indication: MULTIPLE SCLEROSIS
     Dosage: 0.5 MG, QD
     Route: 065
     Dates: start: 20140331, end: 20140613
  2. VITAMIN D3 [Concomitant]
     Active Substance: CHOLECALCIFEROL
     Indication: VITAMIN D DEFICIENCY
     Dosage: 2000 IU, QD
     Route: 048
     Dates: start: 20140409

REACTIONS (4)
  - Normal newborn [Unknown]
  - Maternal exposure during pregnancy [Unknown]
  - Complication of delivery [Unknown]
  - Prolonged labour [Unknown]

NARRATIVE: CASE EVENT DATE: 20141219
